FAERS Safety Report 6484786-0 (Version None)
Quarter: 2009Q4

REPORT INFORMATION
  Report Type: 
  Country: None (occurrence: None)
  Receive Date: 20091209
  Receipt Date: 20081111
  Transmission Date: 20100525
  Serious: No
  Sender: FDA-Public Use
  Company Number: A0755978A

PATIENT
  Sex: Female

DRUGS (1)
  1. AVANDAMET [Suspect]
     Dosage: 1TAB TWICE PER DAY
     Route: 048
     Dates: start: 20071101, end: 20081001

REACTIONS (5)
  - CARDIAC MURMUR [None]
  - DYSPNOEA [None]
  - OEDEMA [None]
  - PALPITATIONS [None]
  - WEIGHT INCREASED [None]
